FAERS Safety Report 16239630 (Version 1)
Quarter: 2019Q2

REPORT INFORMATION
  Report Type: Spontaneous
  Country: FR (occurrence: FR)
  Receive Date: 20190425
  Receipt Date: 20190425
  Transmission Date: 20190711
  Serious: Yes (Other)
  Sender: FDA-Public Use
  Company Number: FR-BAYER-2019-081647

PATIENT
  Age: 47 Year
  Sex: Female

DRUGS (4)
  1. STIVARGA [Suspect]
     Active Substance: REGORAFENIB
     Indication: COLON CANCER
     Dosage: 80 MG, QD
     Dates: start: 201812, end: 201904
  2. STIVARGA [Suspect]
     Active Substance: REGORAFENIB
     Indication: LARGE INTESTINAL STENOSIS
  3. STIVARGA [Suspect]
     Active Substance: REGORAFENIB
     Indication: METASTASES TO LIVER
  4. STIVARGA [Suspect]
     Active Substance: REGORAFENIB
     Indication: METASTASES TO LUNG

REACTIONS (5)
  - Metastases to bone [None]
  - Metastases to central nervous system [None]
  - Metastases to lung [None]
  - Off label use [None]
  - Metastases to liver [None]

NARRATIVE: CASE EVENT DATE: 201812
